FAERS Safety Report 5718646-7 (Version None)
Quarter: 2008Q2

REPORT INFORMATION
  Report Type: 
  Country: None (occurrence: None)
  Receive Date: 20080425
  Receipt Date: 20080414
  Transmission Date: 20081010
  Serious: Yes (Other)
  Sender: FDA-Public Use
  Company Number: NO-PFIZER INC-2008032532

PATIENT
  Sex: Female

DRUGS (3)
  1. LYRICA [Suspect]
     Route: 048
     Dates: start: 20070820, end: 20070921
  2. PANTOPRAZOLE SODIUM [Suspect]
     Route: 048
     Dates: start: 20070815, end: 20070919
  3. ANASTROZOLE [Suspect]
     Indication: BREAST CANCER
     Route: 048
     Dates: start: 20070815, end: 20070919

REACTIONS (1)
  - TOXIC EPIDERMAL NECROLYSIS [None]
